FAERS Safety Report 4899671-5 (Version None)
Quarter: 2006Q1

REPORT INFORMATION
  Report Type: 
  Country: None (occurrence: None)
  Receive Date: 20060131
  Receipt Date: 20060117
  Transmission Date: 20060701
  Serious: Yes (Death, Hospitalization)
  Sender: FDA-Public Use
  Company Number: 2006RR-01503

PATIENT
  Age: 59 Year
  Sex: Male

DRUGS (12)
  1. AMOXICILLIN (AMOXICILLIN)  CAPSULE, 250MG [Suspect]
     Dosage: 500 MG, BID,; 500 MG, TID,
     Dates: start: 20030606, end: 20030618
  2. AMOXICILLIN (AMOXICILLIN)  CAPSULE, 250MG [Suspect]
     Dosage: 500 MG, BID,; 500 MG, TID,
     Dates: start: 20030606, end: 20030618
  3. CLAVULANIC ACID (CLAVULANIC ACID) [Suspect]
     Indication: CELLULITIS
     Dosage: 125 MG, BID,
     Dates: start: 20030705
  4. ATENOLOL [Concomitant]
  5. TRIAMTERENE [Concomitant]
  6. HYDROCHLOROTHIAZIDE [Concomitant]
  7. ATORVASTATIN CALCIUM [Concomitant]
  8. TESTOSTERONE INJECTION [Concomitant]
  9. SILDENAFIL [Concomitant]
  10. HYDROCODONE BITARTRATE [Concomitant]
  11. PARACETAMOL (PARACETAMOL) TABLET, 500 MG [Concomitant]
  12. NAPROXEN TABLETS (NAPROXEN) TABLET, 500 MG [Concomitant]

REACTIONS (7)
  - HEPATIC FAILURE [None]
  - HEPATIC NECROSIS [None]
  - HEPATITIS ACUTE [None]
  - HYPOTENSION [None]
  - INTERNATIONAL NORMALISED RATIO INCREASED [None]
  - MULTI-ORGAN FAILURE [None]
  - RESPIRATORY FAILURE [None]
